FAERS Safety Report 11146687 (Version 5)
Quarter: 2015Q3

REPORT INFORMATION
  Report Type: Spontaneous
  Country: US (occurrence: US)
  Receive Date: 20150528
  Receipt Date: 20150731
  Transmission Date: 20151125
  Serious: Yes (Death, Hospitalization)
  Sender: FDA-Public Use
  Company Number: US-JNJFOC-20150518940

PATIENT
  Sex: Female
  Weight: 65 kg

DRUGS (8)
  1. ACYCLOVIR. [Concomitant]
     Active Substance: ACYCLOVIR
  2. DOXYCYCLINE. [Concomitant]
     Active Substance: DOXYCYCLINE
  3. IMBRUVICA [Suspect]
     Active Substance: IBRUTINIB
     Indication: CHRONIC LYMPHOCYTIC LEUKAEMIA
     Route: 048
     Dates: start: 2015
  4. IMBRUVICA [Suspect]
     Active Substance: IBRUTINIB
     Indication: CHRONIC LYMPHOCYTIC LEUKAEMIA
     Route: 048
     Dates: start: 2015
  5. PROTONIX [Concomitant]
     Active Substance: PANTOPRAZOLE SODIUM
  6. METOPROLOL [Concomitant]
     Active Substance: METOPROLOL
  7. BENDAMUSTINE [Suspect]
     Active Substance: BENDAMUSTINE
     Indication: CHRONIC LYMPHOCYTIC LEUKAEMIA
     Route: 042
  8. IMBRUVICA [Suspect]
     Active Substance: IBRUTINIB
     Indication: CHRONIC LYMPHOCYTIC LEUKAEMIA
     Route: 048
     Dates: start: 201503, end: 2015

REACTIONS (10)
  - Platelet destruction increased [Not Recovered/Not Resolved]
  - Platelet count decreased [Unknown]
  - Colonic abscess [Unknown]
  - Respiratory arrest [Fatal]
  - Pyrexia [Unknown]
  - Oophoritis [Recovering/Resolving]
  - Anaemia [Unknown]
  - Diverticulitis [Recovering/Resolving]
  - Neutrophil count decreased [Not Recovered/Not Resolved]
  - Haematoma [Unknown]

NARRATIVE: CASE EVENT DATE: 2015
